FAERS Safety Report 20858368 (Version 1)
Quarter: 2022Q2

REPORT INFORMATION
  Report Type: Report from Study
  Country: US (occurrence: US)
  Receive Date: 20220521
  Receipt Date: 20220521
  Transmission Date: 20220721
  Serious: Yes (Hospitalization, Other)
  Sender: FDA-Public Use
  Company Number: US-TEVA-2022-US-2027393

PATIENT
  Age: 59 Year
  Sex: Male

DRUGS (3)
  1. TREPROSTINIL [Suspect]
     Active Substance: TREPROSTINIL
     Indication: Pulmonary arterial hypertension
     Dosage: 66.1 NG/KG/MIN, CONTINUOUS
     Route: 042
     Dates: start: 20220205
  2. TREPROSTINIL [Suspect]
     Active Substance: TREPROSTINIL
     Dosage: REDUCE HIS PUMP RATE TO 40 ML/24HR, STILL USING 8 MLS OF TREPROSTINIL 2.5MG/ML WITH 92 MLS OF DILUEN
     Route: 042
  3. TREPROSTINIL [Suspect]
     Active Substance: TREPROSTINIL
     Dosage: 73 NG/KG/MIN, CONTINUOUS
     Route: 042
     Dates: start: 20220208

REACTIONS (8)
  - Atrial flutter [Unknown]
  - Vomiting [Recovered/Resolved]
  - Cellulitis [Recovered/Resolved]
  - Rash [Not Recovered/Not Resolved]
  - Skin exfoliation [Not Recovered/Not Resolved]
  - Dry skin [Not Recovered/Not Resolved]
  - Wound drainage [Not Recovered/Not Resolved]
  - Scratch [Not Recovered/Not Resolved]

NARRATIVE: CASE EVENT DATE: 20220301
